FAERS Safety Report 8479759-2 (Version None)
Quarter: 2012Q2

REPORT INFORMATION
  Report Type: 
  Country: None (occurrence: None)
  Receive Date: 20120629
  Receipt Date: 20120619
  Transmission Date: 20120825
  Serious: Yes (Hospitalization, Other)
  Sender: FDA-Public Use
  Company Number: JP-VERTEX PHARMACEUTICALS INC.-AE-2012-001652

PATIENT
  Age: 69 Year
  Sex: Female

DRUGS (5)
  1. PEGINTERFERON ALFA-2B [Concomitant]
     Route: 058
     Dates: start: 20111208
  2. RIBAVIRIN [Concomitant]
     Route: 048
     Dates: start: 20111208, end: 20111227
  3. TELAVIC (TELAPREVIR) [Suspect]
     Indication: HEPATITIS C
     Route: 048
     Dates: start: 20111208, end: 20120301
  4. RIBAVIRIN [Concomitant]
     Route: 048
     Dates: start: 20111228, end: 20120111
  5. RIBAVIRIN [Concomitant]
     Route: 048
     Dates: start: 20120112, end: 20120301

REACTIONS (2)
  - RASH [None]
  - ANAEMIA [None]
